FAERS Safety Report 8589248-2 (Version None)
Quarter: 2012Q3

REPORT INFORMATION
  Report Type: 
  Country: None (occurrence: None)
  Receive Date: 20120731
  Receipt Date: 20120716
  Transmission Date: 20120928
  Serious: Yes (Hospitalization)
  Sender: FDA-Public Use
  Company Number: TPA2012A05141

PATIENT
  Age: 72 Year
  Sex: Male

DRUGS (21)
  1. ADENURIC (FEBUXOSTAT) [Suspect]
     Indication: HYPERURICAEMIA
     Dosage: ORAL
     Route: 048
  2. MOTILIUM [Concomitant]
  3. NEXIUM [Suspect]
     Indication: PRODUCT USED FOR UNKNOWN INDICATION
     Dates: start: 20120519, end: 20120101
  4. TRAMADOL HCL [Concomitant]
  5. LOVENOX [Concomitant]
  6. REPAGLINIDE [Concomitant]
  7. LANTUS [Concomitant]
  8. DUPHALAC [Concomitant]
  9. VOGALENE (METOPIMAZINE) [Concomitant]
  10. BISOPROLOL FUMARATE [Concomitant]
  11. ACETAMINOPHEN [Concomitant]
  12. MORPHINE SULFATE [Concomitant]
  13. CRESTOR [Concomitant]
  14. METFORMIN HYDROCHLORIDE [Concomitant]
  15. KARDEGIC (ACETYLSALICYLATE LYSINE) [Concomitant]
  16. EFIENT (PRASUGREL) [Concomitant]
  17. LYRICA [Concomitant]
  18. POLYETHYLENE GLYCOL [Concomitant]
  19. LEVOTHYROXINE SODIUM [Concomitant]
  20. ACUPAN [Concomitant]
  21. DIAMICRON (GLICLAZIDE) [Concomitant]

REACTIONS (1)
  - AGRANULOCYTOSIS [None]
